FAERS Safety Report 9340982 (Version 2)
Quarter: 2013Q3

REPORT INFORMATION
  Report Type: Report from Study
  Country: DE (occurrence: TR)
  Receive Date: 20130610
  Receipt Date: 20130828
  Transmission Date: 20140515
  Serious: Yes (Hospitalization)
  Sender: FDA-Public Use
  Company Number: DE-ACTELION-A-US2013-84257

PATIENT
  Age: 64 Year
  Sex: Female
  Weight: 70 kg

DRUGS (2)
  1. VENTAVIS [Suspect]
     Indication: PULMONARY ARTERIAL HYPERTENSION
     Dosage: X6/DAY
     Route: 055
     Dates: start: 20121225, end: 201306
  2. VENTAVIS [Suspect]
     Dosage: UNK
     Route: 055
     Dates: start: 20130627

REACTIONS (1)
  - Myocardial infarction [Recovered/Resolved]
